FAERS Safety Report 10196678 (Version 1)
Quarter: 2014Q2

REPORT INFORMATION
  Report Type: Report from Study
  Country: JP (occurrence: JP)
  Receive Date: 20140527
  Receipt Date: 20140527
  Transmission Date: 20141212
  Serious: Yes (Hospitalization)
  Sender: FDA-Public Use
  Company Number: JP-SA-2014SA065111

PATIENT
  Age: 65 Year
  Sex: Female
  Weight: 57 kg

DRUGS (15)
  1. THYMOGLOBULIN [Suspect]
     Indication: APLASTIC ANAEMIA
     Route: 042
     Dates: start: 20121022, end: 20121026
  2. PREDONINE [Suspect]
     Indication: PROPHYLAXIS
     Route: 065
     Dates: start: 20121027, end: 20121122
  3. SOL-MELCORT [Suspect]
     Indication: APLASTIC ANAEMIA
     Route: 065
     Dates: start: 20121021, end: 20121025
  4. GLIMEPIRIDE [Concomitant]
     Indication: DIABETES MELLITUS
     Dates: end: 20121024
  5. JANUVIA [Concomitant]
     Indication: DIABETES MELLITUS
     Dates: end: 20121024
  6. METGLUCO [Concomitant]
     Indication: DIABETES MELLITUS
  7. SEIBULE [Concomitant]
     Indication: DIABETES MELLITUS
  8. DIPHENHYDRAMINE [Concomitant]
     Indication: PROPHYLAXIS
     Dates: start: 20121021, end: 20121025
  9. VICCLOX [Concomitant]
     Indication: PROPHYLAXIS
     Dates: start: 20121021, end: 20121202
  10. ITRIZOLE [Concomitant]
     Indication: PROPHYLAXIS
     Dates: start: 20121021, end: 20121209
  11. BAKTAR [Concomitant]
     Indication: PROPHYLAXIS
     Dates: start: 20121021
  12. LEVEMIR FLEXPEN [Concomitant]
     Indication: DIABETES MELLITUS
     Dosage: DOSE:300 UNIT(S)
     Dates: start: 20121025
  13. INSULIN ASPART [Concomitant]
     Indication: DIABETES MELLITUS
     Dosage: DOSE:300 UNIT(S)
     Dates: start: 20121025
  14. FUNGUARD [Concomitant]
     Indication: PROPHYLAXIS
     Dates: start: 20121102, end: 20121111
  15. NEORAL [Concomitant]
     Indication: APLASTIC ANAEMIA
     Dates: start: 20121021

REACTIONS (2)
  - Febrile neutropenia [Recovered/Resolved]
  - Gastric mucosal lesion [Recovered/Resolved]
